FAERS Safety Report 18696479 (Version 1)
Quarter: 2021Q1

REPORT INFORMATION
  Report Type: Spontaneous
  Country: US (occurrence: US)
  Receive Date: 20210104
  Receipt Date: 20210104
  Transmission Date: 20210419
  Serious: No
  Sender: FDA-Public Use
  Company Number: US-UPSHER-SMITH LABORATORIES, LLC-2020USL00557

PATIENT
  Sex: Male

DRUGS (1)
  1. POTASSIUM CHLORIDE MICRO?DISPERSIBLE [Suspect]
     Active Substance: POTASSIUM CHLORIDE

REACTIONS (2)
  - Poor quality product administered [Unknown]
  - Abdominal discomfort [Unknown]

NARRATIVE: CASE EVENT DATE: 2020
